FAERS Safety Report 24384896 (Version 3)
Quarter: 2024Q4

REPORT INFORMATION
  Report Type: Spontaneous
  Country: TR (occurrence: TR)
  Receive Date: 20241001
  Receipt Date: 20241024
  Transmission Date: 20250115
  Serious: Yes (Other)
  Sender: ELI LILLY AND COMPANY
  Company Number: TR-Merck Healthcare KGaA-2024050412

PATIENT
  Age: 51 Year
  Sex: Female

DRUGS (1)
  1. ERBITUX [Suspect]
     Active Substance: CETUXIMAB
     Indication: Lung cancer metastatic
     Dosage: UNK UNK, OTHER (ONCE IN TWO WEEKS)
     Route: 042
     Dates: start: 20240701

REACTIONS (3)
  - Skin wound [Recovering/Resolving]
  - Skin haemorrhage [Recovering/Resolving]
  - Off label use [Unknown]
